FAERS Safety Report 25379732 (Version 1)
Quarter: 2025Q2

REPORT INFORMATION
  Report Type: Spontaneous
  Country: JP (occurrence: JP)
  Receive Date: 20250530
  Receipt Date: 20250530
  Transmission Date: 20250717
  Serious: Yes (Other)
  Sender: MERCK SHARP & DOHME LLC
  Company Number: JP-009507513-2290405

PATIENT
  Age: 80 Year
  Sex: Male

DRUGS (10)
  1. KEYTRUDA [Suspect]
     Active Substance: PEMBROLIZUMAB
     Indication: Pelvic neoplasm
     Dates: start: 202501, end: 202501
  2. KEYTRUDA [Suspect]
     Active Substance: PEMBROLIZUMAB
     Indication: Pelvic neoplasm
     Dates: start: 2025, end: 2025
  3. KEYTRUDA [Suspect]
     Active Substance: PEMBROLIZUMAB
     Indication: Pelvic neoplasm
     Dates: start: 2025, end: 2025
  4. KEYTRUDA [Suspect]
     Active Substance: PEMBROLIZUMAB
     Indication: Pelvic neoplasm
     Dates: start: 202503, end: 202503
  5. KEYTRUDA [Suspect]
     Active Substance: PEMBROLIZUMAB
     Indication: Pelvic neoplasm
     Dates: start: 202504, end: 202504
  6. ENFORTUMAB VEDOTIN [Suspect]
     Active Substance: ENFORTUMAB VEDOTIN
     Indication: Pelvic neoplasm
     Dates: start: 202501, end: 2025
  7. ENFORTUMAB VEDOTIN [Suspect]
     Active Substance: ENFORTUMAB VEDOTIN
     Indication: Pelvic neoplasm
     Dates: start: 2025, end: 2025
  8. ENFORTUMAB VEDOTIN [Suspect]
     Active Substance: ENFORTUMAB VEDOTIN
     Indication: Pelvic neoplasm
     Dates: start: 2025, end: 2025
  9. ENFORTUMAB VEDOTIN [Suspect]
     Active Substance: ENFORTUMAB VEDOTIN
     Indication: Pelvic neoplasm
     Dates: start: 202503, end: 2025
  10. ENFORTUMAB VEDOTIN [Suspect]
     Active Substance: ENFORTUMAB VEDOTIN
     Indication: Pelvic neoplasm
     Dates: start: 202504, end: 2025

REACTIONS (6)
  - Dementia [Not Recovered/Not Resolved]
  - Urticaria [Recovering/Resolving]
  - Eczema asteatotic [Recovering/Resolving]
  - Rash [Recovering/Resolving]
  - Therapy partial responder [Not Recovered/Not Resolved]
  - Pruritus [Unknown]

NARRATIVE: CASE EVENT DATE: 20250101
